FAERS Safety Report 5372539-6 (Version None)
Quarter: 2007Q2

REPORT INFORMATION
  Report Type: 
  Country: None (occurrence: None)
  Receive Date: 20070626
  Receipt Date: 20070613
  Transmission Date: 20071010
  Serious: Yes (Death)
  Sender: FDA-Public Use
  Company Number: 155879ISR

PATIENT
  Age: 30 Month
  Sex: Male

DRUGS (6)
  1. CARBOPLATIN [Suspect]
     Indication: RHABDOMYOSARCOMA
  2. ETOPOSIDE [Suspect]
     Indication: RHABDOMYOSARCOMA
  3. DACTINOMYCIN [Suspect]
     Indication: RHABDOMYOSARCOMA
     Dosage: 1.5 MG/M2
  4. EPIRUBICIN [Suspect]
     Indication: RHABDOMYOSARCOMA
     Dosage: 150 MG/M2
  5. IFOSFAMIDE [Suspect]
     Indication: RHABDOMYOSARCOMA
  6. VINCRISTINE SULFATE [Suspect]
     Indication: RHABDOMYOSARCOMA

REACTIONS (7)
  - FEBRILE NEUTROPENIA [None]
  - INTERSTITIAL LUNG DISEASE [None]
  - OTOTOXICITY [None]
  - PNEUMONIA [None]
  - RECALL PHENOMENON [None]
  - RESPIRATORY FAILURE [None]
  - SKIN REACTION [None]
